FAERS Safety Report 17063403 (Version 2)
Quarter: 2019Q4

REPORT INFORMATION
  Report Type: Spontaneous
  Country: DE (occurrence: DE)
  Receive Date: 20191122
  Receipt Date: 20191202
  Transmission Date: 20200122
  Serious: Yes (Other)
  Sender: FDA-Public Use
  Company Number: DE-TEVA-2019-DE-1138251

PATIENT
  Age: 68 Year
  Sex: Male

DRUGS (2)
  1. DIAZEPAM 10 MG/ML TROPFEN (MAH UNKNOWN) [Suspect]
     Active Substance: DIAZEPAM
     Indication: AURA
  2. DIAZEPAM 10 MG/ML TROPFEN (MAH UNKNOWN) [Suspect]
     Active Substance: DIAZEPAM
     Indication: EPILEPSY
     Route: 048

REACTIONS (5)
  - Product preparation issue [Unknown]
  - Epilepsy [Unknown]
  - Status epilepticus [Not Recovered/Not Resolved]
  - Therapeutic product effect decreased [Unknown]
  - Product storage error [Unknown]
